FAERS Safety Report 15889664 (Version 2)
Quarter: 2019Q2

REPORT INFORMATION
  Report Type: Report from Study
  Country: US (occurrence: US)
  Receive Date: 20190130
  Receipt Date: 20190619
  Transmission Date: 20190711
  Serious: Yes (Hospitalization, Other)
  Sender: FDA-Public Use
  Company Number: US-SAKK-2019SA022226AA

PATIENT
  Age: 67 Year
  Sex: Male

DRUGS (2)
  1. INSULIN LISPRO [Suspect]
     Active Substance: INSULIN LISPRO
     Dosage: UNK
  2. INSULIN GLARGINE [Suspect]
     Active Substance: INSULIN GLARGINE
     Indication: DIABETES MELLITUS
     Dosage: 33 U, HS

REACTIONS (11)
  - Mass [Recovered/Resolved]
  - Gait disturbance [Recovered/Resolved]
  - Rib fracture [Recovered/Resolved]
  - Infection [Recovered/Resolved]
  - Musculoskeletal discomfort [Not Recovered/Not Resolved]
  - Pneumothorax [Recovered/Resolved]
  - Trigger finger [Recovered/Resolved]
  - Paralysis [Unknown]
  - Hypoaesthesia [Recovering/Resolving]
  - Neuralgia [Recovered/Resolved]
  - Osteoarthritis [Not Recovered/Not Resolved]
